FAERS Safety Report 9778889 (Version 2)
Quarter: 2014Q1

REPORT INFORMATION
  Report Type: Spontaneous
  Country: JP (occurrence: JP)
  Receive Date: 20131223
  Receipt Date: 20140303
  Transmission Date: 20141002
  Serious: Yes (Hospitalization)
  Sender: FDA-Public Use
  Company Number: JP-JNJFOC-20131210779

PATIENT
  Age: 90 Year
  Sex: Female

DRUGS (8)
  1. FINIBAX [Suspect]
     Indication: URINARY TRACT INFECTION
     Dosage: 0.5 G TWICE DAILY
     Route: 041
     Dates: start: 20131026, end: 20131031
  2. BAKTAR [Suspect]
     Indication: URINARY TRACT INFECTION
     Route: 065
     Dates: start: 20131101, end: 201311
  3. BLOPRESS [Concomitant]
     Indication: HYPERTENSION
     Route: 048
  4. NEXIUM [Concomitant]
     Indication: GASTROOESOPHAGEAL REFLUX DISEASE
     Route: 048
  5. THEODUR [Concomitant]
     Indication: ASTHMA
     Route: 048
  6. PRAVASTATIN SODIUM [Concomitant]
     Indication: HYPERCHOLESTEROLAEMIA
     Route: 048
  7. SENNOSIDE [Concomitant]
     Indication: CONSTIPATION
     Route: 048
  8. MAGMITT [Concomitant]
     Indication: CONSTIPATION
     Route: 048

REACTIONS (1)
  - Hypoglycaemic coma [Recovered/Resolved]
